FAERS Safety Report 8345748-1 (Version None)
Quarter: 2012Q2

REPORT INFORMATION
  Report Type: 
  Country: None (occurrence: None)
  Receive Date: 20120508
  Receipt Date: 20120425
  Transmission Date: 20120825
  Serious: Yes (Hospitalization, Other)
  Sender: FDA-Public Use
  Company Number: US-ELI_LILLY_AND_COMPANY-US201204009568

PATIENT
  Sex: Female

DRUGS (6)
  1. FORTEO [Suspect]
     Indication: OSTEOPENIA
     Dosage: 20 UG, QD
     Route: 065
     Dates: start: 20111201
  2. DIAZEPAM [Concomitant]
  3. BYSTOLIC [Concomitant]
  4. MULTI-VITAMIN [Concomitant]
  5. OXYCODONE HCL [Concomitant]
  6. FOLIC ACID [Concomitant]

REACTIONS (6)
  - THORACIC VERTEBRAL FRACTURE [None]
  - PAIN [None]
  - INTENTIONAL DRUG MISUSE [None]
  - CONVULSION [None]
  - BLOOD ELECTROLYTES DECREASED [None]
  - FALL [None]
